FAERS Safety Report 19197294 (Version 1)
Quarter: 2021Q2

REPORT INFORMATION
  Report Type: Spontaneous
  Country: US (occurrence: US)
  Receive Date: 20210429
  Receipt Date: 20210429
  Transmission Date: 20210717
  Serious: Yes (Hospitalization, Other)
  Sender: FDA-Public Use
  Company Number: US-B.I. PHARMACEUTICALS,INC./RIDGEFIELD-2021-BI-100210

PATIENT
  Age: 74 Year
  Sex: Female

DRUGS (8)
  1. PROLIA [Concomitant]
     Active Substance: DENOSUMAB
     Indication: OSTEOPOROSIS
     Dosage: EVERY 6 MONTHS
  2. MECLIZINE [Concomitant]
     Active Substance: MECLIZINE HYDROCHLORIDE
     Indication: VERTIGO
     Dosage: DAILY AND AS NEEDED
     Route: 065
  3. PLAVIX [Concomitant]
     Active Substance: CLOPIDOGREL BISULFATE
     Indication: CORONARY ARTERIAL STENT INSERTION
     Dosage: 75MG DAILY
     Route: 065
  4. FISH OIL [Concomitant]
     Active Substance: FISH OIL
     Indication: SUPPLEMENTATION THERAPY
     Route: 065
  5. OSTEO?BI?FLEX [Concomitant]
     Indication: OSTEOPOROSIS
     Route: 065
  6. CRANBERRY [VACCINIUM MACROCARPON] [Concomitant]
     Active Substance: CRANBERRY
     Indication: SUPPLEMENTATION THERAPY
     Route: 065
  7. NITROGLYCERIN. [Concomitant]
     Active Substance: NITROGLYCERIN
     Indication: CHEST PAIN
     Dosage: AS NEEDED
     Route: 065
  8. MIRAPEX [Suspect]
     Active Substance: PRAMIPEXOLE DIHYDROCHLORIDE
     Indication: RESTLESS LEGS SYNDROME
     Dosage: 1MG BID
     Route: 065
     Dates: start: 2005

REACTIONS (7)
  - Osteoporosis [Unknown]
  - Insomnia [Unknown]
  - Road traffic accident [Recovered/Resolved]
  - Myocardial infarction [Recovered/Resolved]
  - Multiple allergies [Unknown]
  - Spondylitis [Unknown]
  - Vertigo [Unknown]

NARRATIVE: CASE EVENT DATE: 2006
